FAERS Safety Report 8886781 (Version 2)
Quarter: 2012Q4

REPORT INFORMATION
  Report Type: 
  Country: US (occurrence: US)
  Receive Date: 20121105
  Receipt Date: 20121212
  Transmission Date: 20130627
  Serious: No
  Sender: FDA-Public Use
  Company Number: US-VERTEX PHARMACEUTICAL INC.-2012-023986

PATIENT
  Sex: Male

DRUGS (4)
  1. VX-950 (TELAPREVIR) [Suspect]
     Indication: HEPATITIS C
     Dosage: 750 mg, tid
     Route: 048
     Dates: start: 20120828
  2. PEGASYS [Concomitant]
     Indication: HEPATITIS C
     Dosage: 180 ?g, qw
     Route: 058
     Dates: start: 20120828
  3. RIBAPAK [Concomitant]
     Indication: HEPATITIS C
     Dosage: 400 mg, bid
     Route: 048
     Dates: start: 20120828
  4. RIBAPAK [Concomitant]
     Dosage: 400 mg, bid

REACTIONS (5)
  - Insomnia [Unknown]
  - Alopecia [Unknown]
  - Apathy [Unknown]
  - Anaemia [Unknown]
  - Pruritus [Unknown]
